FAERS Safety Report 8834244 (Version 2)
Quarter: 2012Q4

REPORT INFORMATION
  Report Type: Report from Study
  Country: US (occurrence: US)
  Receive Date: 20121010
  Receipt Date: 20121018
  Transmission Date: 20130627
  Serious: Yes (Hospitalization)
  Sender: FDA-Public Use
  Company Number: US-009507513-1210USA001721

PATIENT
  Age: 64 Year
  Sex: Male
  Weight: 79.82 kg

DRUGS (4)
  1. MK-0683 [Suspect]
     Indication: MULTIPLE MYELOMA
     Dosage: 300 mg, UNK
     Route: 048
  2. HEXADROL TABLETS [Suspect]
     Indication: MULTIPLE MYELOMA
     Dosage: 40 mg, UNK
     Route: 048
  3. LENALIDOMIDE [Suspect]
     Indication: MULTIPLE MYELOMA
     Dosage: 15 mg, UNK
     Route: 048
  4. CARFILZOMIB [Suspect]
     Indication: MULTIPLE MYELOMA
     Dosage: 20 mg/m2, UNK

REACTIONS (1)
  - Appendicitis [Unknown]
